FAERS Safety Report 5635813-1 (Version None)
Quarter: 2008Q1

REPORT INFORMATION
  Report Type: 
  Country: None (occurrence: None)
  Receive Date: 20080221
  Receipt Date: 20080205
  Transmission Date: 20080703
  Serious: Yes (Life-Threatening, Other)
  Sender: FDA-Public Use
  Company Number: DSA_27629_2006

PATIENT
  Age: 58 Year
  Sex: Female

DRUGS (8)
  1. ENALAPRIL MALEATE [Suspect]
     Indication: HYPERTENSION
     Dosage: 20 MG QD ORAL
     Route: 048
     Dates: start: 20050527
  2. MESULID (MESULID - NIMESULIDE) 100 MG [Suspect]
     Indication: OSTEOARTHRITIS
     Dosage: 100 MG BID ORAL
     Route: 048
     Dates: start: 20020101, end: 20051220
  3. CALCIUM CHANNEL BLOCKERS (CALCIUM CHANNEL BLOCKER (UNSPECIFIED)) [Suspect]
     Indication: DRUG USE FOR UNKNOWN INDICATION
     Dosage: DF
  4. CARVEDILOL [Suspect]
     Indication: DRUG USE FOR UNKNOWN INDICATION
     Dosage: DF
  5. MODURETIC 5-50 [Concomitant]
  6. TILCOTIL [Concomitant]
  7. TILDIEM [Concomitant]
  8. ZOCOR [Concomitant]

REACTIONS (4)
  - CARDIAC FAILURE [None]
  - COARCTATION OF THE AORTA [None]
  - CORONARY ARTERY DISEASE [None]
  - PERIPHERAL VASCULAR DISORDER [None]
